FAERS Safety Report 12969398 (Version 4)
Quarter: 2017Q1

REPORT INFORMATION
  Report Type: Spontaneous
  Country: US (occurrence: US)
  Receive Date: 20161123
  Receipt Date: 20170123
  Transmission Date: 20170428
  Serious: Yes (Other)
  Sender: FDA-Public Use
  Company Number: US-PFIZER INC-2016545558

PATIENT
  Age: 49 Year
  Sex: Female
  Weight: 98 kg

DRUGS (19)
  1. LYRICA [Suspect]
     Active Substance: PREGABALIN
     Dosage: 300 MG, 2X/DAY [TAKING 600 MG MORNING + NIGHT]
     Dates: start: 2013, end: 2016
  2. TRAMADOL. [Concomitant]
     Active Substance: TRAMADOL
     Indication: FIBROMYALGIA
     Dosage: 50 MG 1-2 TABLETS THREE TIMES DAILY
     Route: 048
  3. TOPIRAMATE. [Concomitant]
     Active Substance: TOPIRAMATE
     Indication: SLEEP DISORDER
     Dosage: 100 MG, 1X/DAY (ONE TABLET AT NIGHT)
  4. EST ESTRG/MTEST [Concomitant]
     Indication: BLOOD OESTROGEN ABNORMAL
     Dosage: 1X/DAY [ESTROGENS ESTERIFIED: 1.25MG]/[METHYLTESTOSTERONE: 2.5MG]
     Dates: start: 2001
  5. EST ESTRG/MTEST [Concomitant]
     Indication: HYSTERECTOMY
  6. ZYRTEC-D [Concomitant]
     Active Substance: CETIRIZINE HYDROCHLORIDE\PSEUDOEPHEDRINE HYDROCHLORIDE
     Indication: HYPERSENSITIVITY
  7. LYRICA [Suspect]
     Active Substance: PREGABALIN
     Dosage: 300 MG, DAILY
     Dates: start: 2013, end: 201406
  8. LYRICA [Suspect]
     Active Substance: PREGABALIN
     Dosage: 300 MG, DAILY
     Dates: start: 2014
  9. TRAMADOL. [Concomitant]
     Active Substance: TRAMADOL
     Dosage: UNK ( 2-3 TIMES A DAY)
     Route: 048
  10. ASPIRIN. [Concomitant]
     Active Substance: ASPIRIN
     Indication: CEREBROVASCULAR ACCIDENT PROPHYLAXIS
     Dosage: 81 MG, 1X/DAY
  11. ALPRAZOLAM. [Concomitant]
     Active Substance: ALPRAZOLAM
     Dosage: 1 MG, AS NEEDED (TAKE 1 TO 2 TABLET TWICE A DAY)
  12. LYRICA [Suspect]
     Active Substance: PREGABALIN
     Indication: FIBROMYALGIA
     Dosage: UNK, 2X/DAY
  13. CYMBALTA [Concomitant]
     Active Substance: DULOXETINE HYDROCHLORIDE
     Indication: DEPRESSION
     Dosage: 60 MG, 2X/DAY [60 MG 2 A DAY]
  14. TOPAMATE [Concomitant]
     Indication: SLEEP DISORDER
     Dosage: 1X/DAY (0.5-1 TABLET EVERY NIGHT)
  15. TIZANIDINE. [Concomitant]
     Active Substance: TIZANIDINE
     Dosage: UNK (1-3 TIMES A DAY)
  16. ZYRTEC-D [Concomitant]
     Active Substance: CETIRIZINE HYDROCHLORIDE\PSEUDOEPHEDRINE HYDROCHLORIDE
     Indication: NASAL CONGESTION
     Dosage: UNK
  17. LYRICA [Suspect]
     Active Substance: PREGABALIN
     Dosage: 300 MG, DAILY
  18. XANAX [Concomitant]
     Active Substance: ALPRAZOLAM
     Indication: ANXIETY
     Dosage: 1 MG AS NEEDED ONCE OR TWICE DAILY/1 MG 1-3 TIMES A DAY
  19. TIZANIDINE. [Concomitant]
     Active Substance: TIZANIDINE
     Indication: MUSCLE SPASMS
     Dosage: 4 MG, 3X/DAY

REACTIONS (10)
  - Somnolence [Recovering/Resolving]
  - Weight increased [Not Recovered/Not Resolved]
  - Hypokinesia [Unknown]
  - Road traffic accident [Unknown]
  - Gait disturbance [Unknown]
  - Swelling [Recovered/Resolved]
  - Fatigue [Unknown]
  - Activities of daily living impaired [Unknown]
  - Drug effect incomplete [Unknown]
  - Intentional product misuse [Unknown]

NARRATIVE: CASE EVENT DATE: 2013
